FAERS Safety Report 5129920-X (Version None)
Quarter: 2006Q4

REPORT INFORMATION
  Report Type: 
  Country: None (occurrence: None)
  Receive Date: 20061013
  Receipt Date: 20061004
  Transmission Date: 20070319
  Serious: Yes (Disabling)
  Sender: FDA-Public Use
  Company Number: 112372ISR

PATIENT
  Age: 63 Year
  Sex: Male

DRUGS (13)
  1. BISOPROLOL FUMARATE [Suspect]
     Indication: PALPITATIONS
     Dosage: 5 MG, 1 IN 1 D
     Route: 048
     Dates: start: 20060728
  2. AMLODIPINE [Concomitant]
  3. PANCREATIN TRIPLE STRENGTH CAP [Concomitant]
  4. DOSULEPIN [Concomitant]
  5. RAMIPRIL [Concomitant]
  6. PRAVASTATIN [Concomitant]
  7. BENDROFLUMETHIAZIDE [Concomitant]
  8. CIMETIDINE [Concomitant]
  9. METFORMIN HCL [Concomitant]
  10. MEBEVERINE HYDROCHLORIDE [Concomitant]
  11. ASPIRIN [Concomitant]
  12. ISOPHANE INSULIN [Concomitant]
  13. INSULIN HUMAN [Concomitant]

REACTIONS (1)
  - DEAFNESS UNILATERAL [None]
